FAERS Safety Report 9035990 (Version 1)
Quarter: 2013Q1

REPORT INFORMATION
  Report Type: Report from Study
  Country: US (occurrence: US)
  Receive Date: 20130129
  Receipt Date: 20130129
  Transmission Date: 20140127
  Serious: No
  Sender: FDA-Public Use
  Company Number: US-ABBOTT-12P-163-0917651-00

PATIENT
  Age: 63 Year
  Sex: Female

DRUGS (21)
  1. HUMIRA 40 MG/ 0.8 ML PRE-FILLED SYRINGE [Suspect]
     Indication: RHEUMATOID ARTHRITIS
  2. PREDNISONE [Concomitant]
     Indication: RHEUMATOID ARTHRITIS
     Dosage: 5 MG DAILY
     Route: 048
     Dates: start: 1989
  3. METHOTREXATE [Concomitant]
     Indication: RHEUMATOID ARTHRITIS
     Dosage: THREE TABLETS ON WED = 7.5 MG
     Route: 048
  4. METHOTREXATE [Concomitant]
     Dosage: THREE TABLETS ON THURS = 7.5 MG
  5. OMEPRAZOLE [Concomitant]
     Indication: ULCER
     Dosage: 40 MG DAILY
     Route: 048
  6. MULTIVITAMINS [Concomitant]
     Indication: PRODUCT USED FOR UNKNOWN INDICATION
     Dosage: DAILY
     Route: 048
  7. CALCITRATE 600 MG PLUS VITAMIN D [Concomitant]
     Indication: PRODUCT USED FOR UNKNOWN INDICATION
     Route: 048
  8. HYDROCODONE [Concomitant]
     Indication: PAIN
     Dosage: 10/325 MG ONE IN AM AND ONE IN PM
     Route: 048
  9. MS CONTIN [Concomitant]
     Indication: RHEUMATOID ARTHRITIS
     Route: 048
  10. CLONAZEPAM [Concomitant]
     Indication: ESSENTIAL TREMOR
     Dosage: TWO 0.5 MG IN AM AND TWO IN PM = 2 MG
     Route: 048
  11. PAXIL [Concomitant]
     Indication: DEPRESSION
     Dosage: 20 MG DAILY
     Route: 048
  12. IPRATROPIUM BROMIDE [Concomitant]
     Indication: NASAL CONGESTION
     Dosage: NASAL SPRAY, 1 SPRAY EACH NOSTRIL DAILY
  13. PLAQUENIL [Concomitant]
     Indication: RHEUMATOID ARTHRITIS
     Dosage: ONE IN THE AM AND ONE IN PM = 400 MG
     Route: 048
  14. AMITRIPTYLINE [Concomitant]
     Indication: RHEUMATOID ARTHRITIS
     Dosage: ONCE DAILY AT BEDTIME
     Route: 048
  15. EVOXAC [Concomitant]
     Indication: DRY EYE
     Route: 048
  16. EVOXAC [Concomitant]
     Indication: SJOGREN^S SYNDROME
  17. EVOXAC [Concomitant]
     Indication: DRY SKIN
  18. EVOXAC [Concomitant]
     Indication: DRY MOUTH
  19. ALIGN PROBIOTICS [Concomitant]
     Indication: SEDATIVE THERAPY
     Dosage: DAILY
     Route: 048
  20. FOLIC ACID [Concomitant]
     Indication: RHEUMATOID ARTHRITIS
     Dosage: 800 MCG DAILY
     Route: 048
  21. VAGIFEM [Concomitant]
     Indication: PRODUCT USED FOR UNKNOWN INDICATION
     Route: 067

REACTIONS (1)
  - Injection site pain [Recovered/Resolved]
